FAERS Safety Report 25427062 (Version 2)
Quarter: 2025Q3

REPORT INFORMATION
  Report Type: Report from Study
  Country: US (occurrence: US)
  Receive Date: 20250612
  Receipt Date: 20250912
  Transmission Date: 20251020
  Serious: Yes (Disabling, Other)
  Sender: SUNOVION
  Company Number: US-SUMITOMO PHARMA SWITZERLAND GMBH-2025SPA006258

PATIENT
  Age: 71 Year
  Sex: Male

DRUGS (2)
  1. ORGOVYX [Suspect]
     Active Substance: RELUGOLIX
     Indication: Prostate cancer
     Route: 048
  2. ORGOVYX [Suspect]
     Active Substance: RELUGOLIX
     Dosage: 120 MG, QD
     Route: 048
     Dates: start: 20250519

REACTIONS (4)
  - Blindness [Unknown]
  - Pain [Unknown]
  - Hot flush [Unknown]
  - Fatigue [Unknown]
